FAERS Safety Report 6716884-8 (Version None)
Quarter: 2010Q2

REPORT INFORMATION
  Report Type: 
  Country: None (occurrence: None)
  Receive Date: 20100504
  Receipt Date: 20100419
  Transmission Date: 20101027
  Serious: Yes (Hospitalization)
  Sender: FDA-Public Use
  Company Number: 1-22351883

PATIENT
  Age: 23 Year
  Sex: Female

DRUGS (1)
  1. MINOCYCLINE HCL [Suspect]
     Indication: ACNE
     Dosage: ORAL
     Route: 048
     Dates: start: 20100301, end: 20100301

REACTIONS (3)
  - CONVULSION [None]
  - FATIGUE [None]
  - PYREXIA [None]
